FAERS Safety Report 18376485 (Version 1)
Quarter: 2020Q4

REPORT INFORMATION
  Report Type: Spontaneous
  Country: JP (occurrence: JP)
  Receive Date: 20201013
  Receipt Date: 20201013
  Transmission Date: 20210114
  Serious: Yes (Life-Threatening, Hospitalization, Other)
  Sender: FDA-Public Use
  Company Number: JP-LUPIN PHARMACEUTICALS INC.-2020-07146

PATIENT
  Age: 45 Year
  Sex: Male

DRUGS (18)
  1. LEVOFLOXACIN. [Suspect]
     Active Substance: LEVOFLOXACIN
     Indication: ANTIBIOTIC THERAPY
     Dosage: STARTED ON DAY 38
     Route: 065
  2. LEVOFLOXACIN. [Suspect]
     Active Substance: LEVOFLOXACIN
     Indication: CELLULITIS
  3. IDARUBICIN HYDROCHLORIDE. [Suspect]
     Active Substance: IDARUBICIN HYDROCHLORIDE
     Indication: CHEMOTHERAPY
     Dosage: 12 MILLIGRAM/SQ. METER (INDUCTION THERAPY STARTED ON DAY 8)
     Route: 065
  4. MEROPENEM. [Suspect]
     Active Substance: MEROPENEM
     Indication: ANTIBIOTIC THERAPY
     Dosage: UNK (STARTED ON DAY 29)
     Route: 065
  5. AMIKACIN. [Suspect]
     Active Substance: AMIKACIN
     Indication: ANTIBIOTIC THERAPY
  6. AMIKACIN. [Suspect]
     Active Substance: AMIKACIN
     Indication: PNEUMONIA PSEUDOMONAL
  7. IDARUBICIN HYDROCHLORIDE. [Suspect]
     Active Substance: IDARUBICIN HYDROCHLORIDE
     Indication: MARROW HYPERPLASIA
  8. CYTOSINE ARABINOSIDE [Suspect]
     Active Substance: CYTARABINE
     Indication: ACUTE MYELOID LEUKAEMIA
  9. VANCOMYCIN [Suspect]
     Active Substance: VANCOMYCIN
     Indication: CELLULITIS
  10. MEROPENEM. [Suspect]
     Active Substance: MEROPENEM
     Indication: CELLULITIS
     Dosage: UNK (STARTED AGAIN ON DAY 56)
     Route: 065
  11. CEFOZOPRAN [Suspect]
     Active Substance: CEFOZOPRAN
     Indication: CELLULITIS
     Dosage: UNK (AGAIN STARTED ON DAY 49)
     Route: 065
  12. CYTOSINE ARABINOSIDE [Suspect]
     Active Substance: CYTARABINE
     Indication: CHEMOTHERAPY
     Dosage: 100 MILLIGRAM/SQ. METER, QD (INDUCTION THERAPY STARTED ON DAY 8)
     Route: 005
  13. CYTOSINE ARABINOSIDE [Suspect]
     Active Substance: CYTARABINE
     Indication: MARROW HYPERPLASIA
     Dosage: 2000 MILLIGRAM/SQ. METER (CONSOLIDATION THERAPY STARTED ON DAY 38)
     Route: 065
  14. IDARUBICIN HYDROCHLORIDE. [Suspect]
     Active Substance: IDARUBICIN HYDROCHLORIDE
     Indication: ACUTE MYELOID LEUKAEMIA
  15. CEFOZOPRAN [Suspect]
     Active Substance: CEFOZOPRAN
     Indication: FEBRILE NEUTROPENIA
     Dosage: UNK (STARTED ON DAY 2)
     Route: 065
  16. CEFOZOPRAN [Suspect]
     Active Substance: CEFOZOPRAN
     Indication: ANTIBIOTIC THERAPY
  17. VANCOMYCIN [Suspect]
     Active Substance: VANCOMYCIN
     Indication: ANTIBIOTIC THERAPY
     Dosage: UNK (STARTED ON DAY 29)
     Route: 065
  18. AMIKACIN. [Suspect]
     Active Substance: AMIKACIN
     Indication: FEBRILE NEUTROPENIA
     Dosage: UNK
     Route: 065

REACTIONS (5)
  - Haemorrhagic pneumonia [Recovered/Resolved]
  - Stenotrophomonas infection [Recovered/Resolved]
  - Respiratory failure [Recovered/Resolved]
  - Acute respiratory distress syndrome [Recovered/Resolved]
  - Pneumothorax [Recovered/Resolved]
